FAERS Safety Report 6120059-3 (Version None)
Quarter: 2009Q1

REPORT INFORMATION
  Report Type: 
  Country: None (occurrence: None)
  Receive Date: 20090316
  Receipt Date: 20090306
  Transmission Date: 20090719
  Serious: Yes (Hospitalization)
  Sender: FDA-Public Use
  Company Number: FR-AMGEN-US337336

PATIENT
  Sex: Female

DRUGS (2)
  1. ENBREL [Suspect]
     Indication: ANKYLOSING SPONDYLITIS
     Route: 058
     Dates: start: 20081203, end: 20090223
  2. NSAID'S [Suspect]
     Dosage: UNKNOWN

REACTIONS (2)
  - CELLULITIS [None]
  - TOOTH ABSCESS [None]
